FAERS Safety Report 19027036 (Version 1)
Quarter: 2021Q1

REPORT INFORMATION
  Report Type: Spontaneous
  Country: US (occurrence: US)
  Receive Date: 20210318
  Receipt Date: 20210318
  Transmission Date: 20210420
  Serious: No
  Sender: FDA-Public Use
  Company Number: US-BAYER-2021-102344

PATIENT
  Age: 36 Year
  Sex: Female

DRUGS (2)
  1. ADEMPAS [Suspect]
     Active Substance: RIOCIGUAT
     Indication: PULMONARY ARTERIAL HYPERTENSION
     Dosage: 1 MG, TID
     Route: 048
     Dates: start: 20210209
  2. ADEMPAS [Suspect]
     Active Substance: RIOCIGUAT
     Indication: PULMONARY ARTERIAL HYPERTENSION
     Dosage: 1.5 MG, TID
     Route: 048
     Dates: start: 20210224

REACTIONS (7)
  - Joint swelling [Recovered/Resolved]
  - Dizziness [None]
  - Chest discomfort [None]
  - Dyspnoea [None]
  - Peripheral swelling [Recovered/Resolved]
  - Hypopnoea [None]
  - Swelling face [Recovered/Resolved]

NARRATIVE: CASE EVENT DATE: 20210224
